FAERS Safety Report 5405483-6 (Version None)
Quarter: 2007Q3

REPORT INFORMATION
  Report Type: 
  Country: None (occurrence: None)
  Receive Date: 20070803
  Receipt Date: 20070724
  Transmission Date: 20080115
  Serious: Yes (Other)
  Sender: FDA-Public Use
  Company Number: CH-PFIZER INC-2007058492

PATIENT
  Sex: Female
  Weight: 63 kg

DRUGS (7)
  1. LYRICA [Suspect]
     Indication: BACK PAIN
     Route: 048
     Dates: start: 20070625, end: 20070630
  2. LYRICA [Suspect]
     Indication: NEURALGIA
  3. OPIOIDS [Concomitant]
  4. ALL OTHER THERAPEUTIC PRODUCTS [Concomitant]
  5. CALCORT [Concomitant]
     Route: 048
  6. UNIFYL [Concomitant]
     Route: 048
  7. PETHIDINE [Concomitant]
     Route: 058

REACTIONS (4)
  - CONSTIPATION [None]
  - OEDEMA PERIPHERAL [None]
  - PULMONARY CONGESTION [None]
  - WEIGHT INCREASED [None]
